FAERS Safety Report 22306474 (Version 1)
Quarter: 2023Q2

REPORT INFORMATION
  Report Type: Spontaneous
  Country: US (occurrence: US)
  Receive Date: 20230511
  Receipt Date: 20230511
  Transmission Date: 20230721
  Serious: Yes (Hospitalization, Other)
  Sender: FDA-Public Use
  Company Number: US-SANOFI-01603354

PATIENT
  Age: 83 Year
  Sex: Male

DRUGS (3)
  1. TOUJEO [Suspect]
     Active Substance: INSULIN GLARGINE
     Indication: Diabetes mellitus
     Dosage: 30 TO 50 UNITS QD
     Route: 058
  2. TOUJEO [Suspect]
     Active Substance: INSULIN GLARGINE
     Dosage: 80 U, QD
     Route: 058
  3. HUMALOG [Concomitant]
     Active Substance: INSULIN LISPRO
     Dosage: EVERY MEAL

REACTIONS (8)
  - Cystitis [Recovered/Resolved]
  - Cataract [Unknown]
  - Blindness transient [Recovered/Resolved]
  - Blood glucose decreased [Recovered/Resolved]
  - Drug intolerance [Unknown]
  - Memory impairment [Unknown]
  - Product dose omission in error [Unknown]
  - Intentional product misuse [Unknown]
